FAERS Safety Report 7156935-2 (Version None)
Quarter: 2010Q4

REPORT INFORMATION
  Report Type: 
  Country: None (occurrence: None)
  Receive Date: 20101214
  Receipt Date: 20101202
  Transmission Date: 20110411
  Serious: Yes (Hospitalization, Other)
  Sender: FDA-Public Use
  Company Number: PHHY2009CA16316

PATIENT
  Sex: Female

DRUGS (2)
  1. SANDOSTATIN LAR [Suspect]
     Indication: ACROMEGALY
     Dosage: 20 MG EVERY 4 WEEKS
     Route: 030
     Dates: start: 20090326
  2. SANDOSTATIN LAR [Suspect]
     Dosage: 30 MG EVERY 4 WEEKS
     Route: 030

REACTIONS (7)
  - ABDOMINAL DISTENSION [None]
  - ALOPECIA [None]
  - FATIGUE [None]
  - HEADACHE [None]
  - MOLE EXCISION [None]
  - NAUSEA [None]
  - SURGERY [None]
